FAERS Safety Report 9323042 (Version 5)
Quarter: 2014Q1

REPORT INFORMATION
  Report Type: Spontaneous
  Country: CA (occurrence: CA)
  Receive Date: 20130603
  Receipt Date: 20140121
  Transmission Date: 20141002
  Serious: Yes (Hospitalization, Other)
  Sender: FDA-Public Use
  Company Number: CA-AMGEN-CANSP2013038440

PATIENT
  Age: 67 Year
  Sex: Female
  Weight: 47.73 kg

DRUGS (2)
  1. PROLIA [Suspect]
     Indication: OSTEOPOROSIS POSTMENOPAUSAL
     Dosage: UNK
     Route: 065
     Dates: start: 20121031
  2. PROLIA [Suspect]

REACTIONS (12)
  - Intestinal obstruction [Unknown]
  - Urinary tract infection [Unknown]
  - Chest pain [Not Recovered/Not Resolved]
  - Muscle tightness [Unknown]
  - Breast discomfort [Unknown]
  - Discomfort [Unknown]
  - Muscle spasms [Unknown]
  - Muscle disorder [Unknown]
  - Myalgia [Unknown]
  - Pneumonia [Unknown]
  - Back pain [Unknown]
  - Rash [Unknown]
